FAERS Safety Report 4688518-8 (Version None)
Quarter: 2005Q2

REPORT INFORMATION
  Report Type: 
  Country: None (occurrence: None)
  Receive Date: 20050609
  Receipt Date: 20050531
  Transmission Date: 20051028
  Serious: Yes (Other)
  Sender: FDA-Public Use
  Company Number: 2005061380

PATIENT
  Age: 19 Year
  Sex: Female

DRUGS (1)
  1. BEXTRA [Suspect]
     Indication: INFLAMMATION
     Dosage: ORAL
     Route: 048
     Dates: start: 20050201, end: 20050201

REACTIONS (3)
  - ERYTHEMA [None]
  - FACE OEDEMA [None]
  - PRURITUS [None]
